FAERS Safety Report 12628833 (Version 1)
Quarter: 2016Q3

REPORT INFORMATION
  Report Type: Spontaneous
  Country: US (occurrence: None)
  Receive Date: 20160805
  Receipt Date: 20160805
  Transmission Date: 20161109
  Serious: No
  Sender: FDA-Public Use
  Company Number: None

PATIENT

DRUGS (2)
  1. METOPROLOL TARTRATE METOPROLOL TARTRATE [Suspect]
     Active Substance: METOPROLOL TARTRATE
     Dosage: INJECTABLE INJECTION VIAL
  2. CEFAZOLIN SODIUM CEFAZOLIN [Suspect]
     Active Substance: CEFAZOLIN SODIUM
     Dosage: INJECTABLE IV OR IM VIAL
     Route: 042

REACTIONS (1)
  - Product packaging confusion [None]
